FAERS Safety Report 8592916 (Version 3)
Quarter: 2014Q1

REPORT INFORMATION
  Report Type: Spontaneous
  Country: US (occurrence: US)
  Receive Date: 20120604
  Receipt Date: 20140128
  Transmission Date: 20141002
  Serious: Yes (Disabling, Other)
  Sender: FDA-Public Use
  Company Number: US-ASTRAZENECA-2012SE34890

PATIENT
  Age: 52 Year
  Sex: Male

DRUGS (7)
  1. NEXIUM [Suspect]
     Indication: GASTROOESOPHAGEAL REFLUX DISEASE
     Route: 048
  2. NEXIUM [Suspect]
     Indication: GASTROOESOPHAGEAL REFLUX DISEASE
     Route: 048
  3. PREVACID [Concomitant]
     Indication: GASTROOESOPHAGEAL REFLUX DISEASE
  4. ZANTAC [Concomitant]
  5. TAGAMET [Concomitant]
  6. PEPCID [Concomitant]
  7. MYLANTA [Concomitant]
     Dosage: AS NEEDED

REACTIONS (16)
  - Arthropathy [Unknown]
  - Back disorder [Unknown]
  - Musculoskeletal discomfort [Unknown]
  - Back injury [Unknown]
  - Joint injury [Unknown]
  - Spinal disorder [Unknown]
  - Osteoporosis [Unknown]
  - Multiple fractures [Unknown]
  - Rotator cuff syndrome [Unknown]
  - Pain in extremity [Unknown]
  - Arthritis [Unknown]
  - Anxiety [Unknown]
  - Bone disorder [Unknown]
  - Intervertebral disc degeneration [Unknown]
  - Gait disturbance [Unknown]
  - Depression [Unknown]
